FAERS Safety Report 6538909-5 (Version None)
Quarter: 2010Q1

REPORT INFORMATION
  Report Type: 
  Country: None (occurrence: None)
  Receive Date: 20100115
  Receipt Date: 20100111
  Transmission Date: 20100710
  Serious: Yes (Death)
  Sender: FDA-Public Use
  Company Number: US-CELGENEUS-163-20484-09111610

PATIENT
  Sex: Male

DRUGS (1)
  1. INNOHEP [Suspect]
     Route: 065
     Dates: end: 20091001

REACTIONS (1)
  - LUNG NEOPLASM MALIGNANT [None]
